FAERS Safety Report 18130799 (Version 2)
Quarter: 2020Q3

REPORT INFORMATION
  Report Type: Spontaneous
  Country: IT (occurrence: IT)
  Receive Date: 20200810
  Receipt Date: 20200828
  Transmission Date: 20201103
  Serious: Yes (Other)
  Sender: FDA-Public Use
  Company Number: IT-SA-2020SA199087

PATIENT

DRUGS (2)
  1. RAMIPRIL. [Concomitant]
     Active Substance: RAMIPRIL
     Indication: HYPERTENSION
     Dosage: 5 MG, QD
  2. TRIAMCINOLONE ACETONIDE. [Suspect]
     Active Substance: TRIAMCINOLONE ACETONIDE
     Indication: OSTEOARTHRITIS
     Dosage: INJECTED WITH 1 ML OF TRIAMCINOLONE ACETONIDE MG/ML) IN THE TIBIO?TALAR JOINT
     Route: 014

REACTIONS (8)
  - Rash erythematous [Recovered/Resolved]
  - Skin lesion [Recovered/Resolved]
  - Dermatitis allergic [Recovered/Resolved]
  - Type IV hypersensitivity reaction [Recovered/Resolved]
  - Pruritus [Recovered/Resolved]
  - Symmetrical drug-related intertriginous and flexural exanthema [Recovered/Resolved]
  - Dermatitis contact [Recovered/Resolved]
  - Erythema multiforme [Recovered/Resolved]
